FAERS Safety Report 9106091 (Version 1)
Quarter: 2013Q1

REPORT INFORMATION
  Report Type: Spontaneous
  Country: US (occurrence: US)
  Receive Date: 20130220
  Receipt Date: 20130220
  Transmission Date: 20140127
  Serious: Yes (Death)
  Sender: FDA-Public Use
  Company Number: US-PFIZER INC-2013061422

PATIENT
  Age: 56 Year
  Sex: Female

DRUGS (1)
  1. VFEND [Suspect]
     Indication: MYELODYSPLASTIC SYNDROME UNCLASSIFIABLE
     Dosage: 200 MG, 2X/DAY
     Dates: start: 20121024

REACTIONS (2)
  - Pneumonia [Fatal]
  - Leukaemia [Fatal]
